FAERS Safety Report 10005290 (Version 7)
Quarter: 2015Q4

REPORT INFORMATION
  Report Type: Report from Study
  Country: JP (occurrence: JP)
  Receive Date: 20140312
  Receipt Date: 20151005
  Transmission Date: 20160304
  Serious: Yes (Death, Other)
  Sender: FDA-Public Use
  Company Number: PHHY2014JP026372

PATIENT
  Age: 62 Year
  Sex: Female

DRUGS (45)
  1. CLOZARIL [Suspect]
     Active Substance: CLOZAPINE
     Dosage: 325 MG, QD
     Route: 048
     Dates: start: 20131106, end: 20131119
  2. CLOZARIL [Suspect]
     Active Substance: CLOZAPINE
     Dosage: 375 MG, QD
     Route: 048
     Dates: start: 20131129, end: 20131212
  3. CLOZARIL [Suspect]
     Active Substance: CLOZAPINE
     Dosage: 475 MG, QD
     Route: 048
     Dates: start: 20140117, end: 20140123
  4. SODIUM VALPROATE [Concomitant]
     Active Substance: VALPROATE SODIUM
     Indication: SCHIZOPHRENIA, DISORGANISED TYPE
     Dosage: 400 MG, QD
     Route: 048
     Dates: start: 20130920, end: 20131212
  5. ABILIFY [Concomitant]
     Active Substance: ARIPIPRAZOLE
     Indication: SCHIZOPHRENIA, DISORGANISED TYPE
     Dosage: 24 MG, QD
     Route: 048
     Dates: start: 20130605, end: 20130611
  6. ABILIFY [Concomitant]
     Active Substance: ARIPIPRAZOLE
     Dosage: 24 MG, QD
     Route: 048
     Dates: start: 20130705, end: 20130711
  7. CLOZARIL [Suspect]
     Active Substance: CLOZAPINE
     Dosage: 100 MG, QD
     Route: 048
     Dates: start: 20130227, end: 20130305
  8. LEVOMEPROMAZINE [Concomitant]
     Active Substance: LEVOMEPROMAZINE
     Dosage: 25 MG, QD
     Route: 048
     Dates: start: 20130207, end: 20130226
  9. CLOZARIL [Suspect]
     Active Substance: CLOZAPINE
     Dosage: 200 MG, QD
     Route: 048
     Dates: start: 20130322, end: 20130326
  10. LANSOPRAZOLE. [Concomitant]
     Active Substance: LANSOPRAZOLE
     Indication: ELECTROCONVULSIVE THERAPY
     Dosage: 15 MG, QD
     Route: 048
     Dates: end: 20130804
  11. LONASEN [Concomitant]
     Active Substance: BLONANSERIN
     Dosage: 8 MG, QD
     Route: 048
     Dates: start: 20130207, end: 20130212
  12. CLOZARIL [Suspect]
     Active Substance: CLOZAPINE
     Indication: SCHIZOPHRENIA, DISORGANISED TYPE
     Dosage: 12.5 MG, QD
     Route: 048
     Dates: start: 20130201, end: 20130205
  13. CLOZARIL [Suspect]
     Active Substance: CLOZAPINE
     Dosage: 275 MG, QD
     Route: 048
     Dates: start: 20130410, end: 20130416
  14. CLOZARIL [Suspect]
     Active Substance: CLOZAPINE
     Dosage: 350 MG, QD
     Route: 048
     Dates: start: 20130501, end: 20130507
  15. CLOZARIL [Suspect]
     Active Substance: CLOZAPINE
     Dosage: 300 MG, QD
     Route: 048
     Dates: start: 20130619, end: 20130924
  16. CLOZARIL [Suspect]
     Active Substance: CLOZAPINE
     Dosage: 400 MG, QD
     Route: 048
     Dates: start: 20131213, end: 20131226
  17. CLOZARIL [Suspect]
     Active Substance: CLOZAPINE
     Dosage: 475 MG, QD
     Route: 048
     Dates: start: 20140205, end: 20140218
  18. CLOZARIL [Suspect]
     Active Substance: CLOZAPINE
     Dosage: 450 MG, QD
     Route: 048
  19. LANSOPRAZOLE. [Concomitant]
     Active Substance: LANSOPRAZOLE
     Dosage: 15 MG, QD
     Route: 048
     Dates: start: 20131006, end: 20131105
  20. LONASEN [Concomitant]
     Active Substance: BLONANSERIN
     Dosage: 4 MG, QD
     Route: 048
     Dates: start: 20130213, end: 20130219
  21. CLOZARIL [Suspect]
     Active Substance: CLOZAPINE
     Dosage: 475 MG, QD
     Route: 048
     Dates: start: 20130612, end: 20130618
  22. LEVOMEPROMAZINE [Concomitant]
     Active Substance: LEVOMEPROMAZINE
     Indication: SCHIZOPHRENIA, DISORGANISED TYPE
     Dosage: 50 MG, QD
     Route: 048
     Dates: end: 20130206
  23. FLUNITRAZEPAM [Concomitant]
     Active Substance: FLUNITRAZEPAM
     Dosage: 1 MG, QD
     Route: 048
     Dates: start: 20130313, end: 20130319
  24. RHUBARB. [Concomitant]
     Active Substance: RHUBARB
     Indication: PROPHYLAXIS
     Dosage: 2000 MG, QD
     Route: 048
     Dates: start: 20130403, end: 20140109
  25. CLOZARIL [Suspect]
     Active Substance: CLOZAPINE
     Dosage: 125 MG, QD
     Route: 048
     Dates: start: 20130306, end: 20130312
  26. CLOZARIL [Suspect]
     Active Substance: CLOZAPINE
     Dosage: 250 MG, QD
     Route: 048
     Dates: start: 20130403, end: 20130409
  27. CLOZARIL [Suspect]
     Active Substance: CLOZAPINE
     Dosage: 325 MG, QD
     Route: 048
     Dates: start: 20130424, end: 20130430
  28. CLOZARIL [Suspect]
     Active Substance: CLOZAPINE
     Dosage: 400 MG, QD
     Route: 048
     Dates: start: 20130515, end: 20130528
  29. CLOZARIL [Suspect]
     Active Substance: CLOZAPINE
     Dosage: 325 MG, QD
     Route: 048
     Dates: start: 20130925, end: 20131008
  30. CLOZARIL [Suspect]
     Active Substance: CLOZAPINE
     Dosage: 350 MG, QD
     Route: 048
     Dates: start: 20131009, end: 20131105
  31. CLOZARIL [Suspect]
     Active Substance: CLOZAPINE
     Dosage: 350 MG, QD
     Route: 048
     Dates: start: 20131120, end: 20131128
  32. CLOZARIL [Suspect]
     Active Substance: CLOZAPINE
     Dosage: 450 MG, QD
     Route: 048
     Dates: start: 20140110, end: 20140116
  33. CLOZARIL [Suspect]
     Active Substance: CLOZAPINE
     Dosage: 500 MG, QD
     Route: 048
     Dates: start: 20140219
  34. FLUNITRAZEPAM [Concomitant]
     Active Substance: FLUNITRAZEPAM
     Indication: SCHIZOPHRENIA, DISORGANISED TYPE
     Dosage: 2 MG, QD
     Route: 048
     Dates: end: 20130312
  35. CLOZARIL [Suspect]
     Active Substance: CLOZAPINE
     Dosage: 225 MG, QD
     Route: 048
     Dates: start: 20130327, end: 20130402
  36. CLOZARIL [Suspect]
     Active Substance: CLOZAPINE
     Dosage: 425 MG, QD
     Route: 048
     Dates: start: 20130529, end: 20130604
  37. CLOZARIL [Suspect]
     Active Substance: CLOZAPINE
     Dosage: 450 MG, QD
     Route: 048
     Dates: start: 20130605, end: 20130611
  38. CLOZARIL [Suspect]
     Active Substance: CLOZAPINE
     Dosage: 425 MG, QD
     Route: 048
     Dates: start: 20131227, end: 20140109
  39. LONASEN [Concomitant]
     Active Substance: BLONANSERIN
     Indication: SCHIZOPHRENIA, DISORGANISED TYPE
     Dosage: 16 MG, QD
     Route: 048
     Dates: end: 20130206
  40. CLOZARIL [Suspect]
     Active Substance: CLOZAPINE
     Dosage: 50 MG, QD
     Route: 048
     Dates: start: 20130206, end: 20130219
  41. CLOZARIL [Suspect]
     Active Substance: CLOZAPINE
     Dosage: 75 MG, QD
     Route: 048
     Dates: start: 20130220, end: 20130226
  42. CLOZARIL [Suspect]
     Active Substance: CLOZAPINE
     Dosage: 375 MG, QD
     Route: 048
     Dates: start: 20130508, end: 20130514
  43. CLOZARIL [Suspect]
     Active Substance: CLOZAPINE
     Dosage: 450 MG, QD
     Route: 048
     Dates: start: 20140124, end: 20140204
  44. CLOZARIL [Suspect]
     Active Substance: CLOZAPINE
     Dosage: 175 MG, QD
     Route: 048
     Dates: start: 20130313, end: 20130321
  45. CLOZARIL [Suspect]
     Active Substance: CLOZAPINE
     Dosage: 300 MG, QD
     Route: 048
     Dates: start: 20130417, end: 20130423

REACTIONS (20)
  - Psychiatric symptom [Not Recovered/Not Resolved]
  - Vomiting [Fatal]
  - Choking [Unknown]
  - Condition aggravated [Not Recovered/Not Resolved]
  - Asphyxia [Fatal]
  - Fall [Unknown]
  - Thirst [Recovering/Resolving]
  - Salivary hypersecretion [Not Recovered/Not Resolved]
  - Lymphocyte percentage decreased [Unknown]
  - Blood pressure diastolic increased [Unknown]
  - Aspiration [Fatal]
  - Cardio-respiratory arrest [Unknown]
  - Malaise [Unknown]
  - Blood prolactin increased [Unknown]
  - Constipation [Recovering/Resolving]
  - Neutrophil percentage increased [Unknown]
  - Loss of consciousness [Unknown]
  - Eosinophil percentage decreased [Unknown]
  - Heart rate increased [Recovered/Resolved]
  - Red blood cell count decreased [Recovered/Resolved]

NARRATIVE: CASE EVENT DATE: 20130403
